FAERS Safety Report 6390515-1 (Version None)
Quarter: 2009Q4

REPORT INFORMATION
  Report Type: 
  Country: None (occurrence: None)
  Receive Date: 20091005
  Receipt Date: 20091005
  Transmission Date: 20100525
  Serious: Yes (Other)
  Sender: FDA-Public Use
  Company Number: None

PATIENT
  Age: 49 Year
  Sex: Male
  Weight: 76.2043 kg

DRUGS (3)
  1. FENTANYL-100 [Suspect]
     Indication: CARTILAGE INJURY
     Dosage: 1 PATCH Q48H TRANSDERMAL
     Route: 062
     Dates: start: 20091002, end: 20091003
  2. FENTANYL-100 [Suspect]
     Indication: INTERVERTEBRAL DISC INJURY
     Dosage: 1 PATCH Q48H TRANSDERMAL
     Route: 062
     Dates: start: 20091002, end: 20091003
  3. FENTANYL-100 [Suspect]
     Indication: PAIN
     Dosage: 1 PATCH Q48H TRANSDERMAL
     Route: 062
     Dates: start: 20091002, end: 20091003

REACTIONS (5)
  - DEVICE MALFUNCTION [None]
  - GAIT DISTURBANCE [None]
  - PAIN [None]
  - PRODUCT QUALITY ISSUE [None]
  - PRODUCT SUBSTITUTION ISSUE [None]
